FAERS Safety Report 6857359-5 (Version None)
Quarter: 2010Q3

REPORT INFORMATION
  Report Type: 
  Country: None (occurrence: None)
  Receive Date: 20100719
  Receipt Date: 20100712
  Transmission Date: 20110219
  Serious: Yes (Hospitalization, Other)
  Sender: FDA-Public Use
  Company Number: US-AMGEN-QUU400614

PATIENT
  Sex: Female

DRUGS (3)
  1. NPLATE [Suspect]
     Indication: IDIOPATHIC THROMBOCYTOPENIC PURPURA
     Dates: start: 20090505
  2. CORTICOSTEROIDS [Concomitant]
     Dates: start: 19970101
  3. IMMU-G [Concomitant]

REACTIONS (4)
  - EMBOLISM ARTERIAL [None]
  - HOSPITALISATION [None]
  - THROMBOSIS [None]
  - WOUND HAEMORRHAGE [None]
